FAERS Safety Report 12436594 (Version 3)
Quarter: 2016Q3

REPORT INFORMATION
  Report Type: Spontaneous
  Country: JP (occurrence: JP)
  Receive Date: 20160606
  Receipt Date: 20160711
  Transmission Date: 20161109
  Serious: Yes (Hospitalization, Other)
  Sender: FDA-Public Use
  Company Number: JP-ORION CORPORATION ORION PHARMA-ENT 2016-0061

PATIENT
  Age: 84 Year
  Sex: Female

DRUGS (7)
  1. NEODOPASTON [Suspect]
     Active Substance: CARBIDOPA\LEVODOPA
     Route: 048
  2. NEODOPASTON [Suspect]
     Active Substance: CARBIDOPA\LEVODOPA
     Route: 048
     Dates: start: 20160324
  3. TRIHEXYPHENIDYL [Concomitant]
     Active Substance: TRIHEXYPHENIDYL
     Route: 065
  4. NEODOPASTON [Suspect]
     Active Substance: CARBIDOPA\LEVODOPA
     Route: 048
     Dates: start: 20160225
  5. COMTAN [Suspect]
     Active Substance: ENTACAPONE
     Indication: PARKINSON^S DISEASE
     Route: 048
  6. COMTAN [Suspect]
     Active Substance: ENTACAPONE
     Route: 048
     Dates: start: 20160225, end: 20160324
  7. MOSAPRIDE [Concomitant]
     Active Substance: MOSAPRIDE
     Route: 065

REACTIONS (6)
  - Loss of consciousness [Unknown]
  - Cerebral infarction [Unknown]
  - Hypersomnia [Recovered/Resolved]
  - Epilepsy [Unknown]
  - Sudden onset of sleep [Recovered/Resolved]
  - Cerebral atrophy [Unknown]

NARRATIVE: CASE EVENT DATE: 201510
